FAERS Safety Report 9219961 (Version 2)
Quarter: 2013Q2

REPORT INFORMATION
  Report Type: Spontaneous
  Country: ES (occurrence: ES)
  Receive Date: 20130409
  Receipt Date: 20130507
  Transmission Date: 20140414
  Serious: Yes (Other)
  Sender: FDA-Public Use
  Company Number: ES-MERCK-1304ESP002891

PATIENT
  Age: 67 Year
  Sex: Male
  Weight: 68 kg

DRUGS (2)
  1. PEGINTRON [Suspect]
     Indication: CHRONIC HEPATITIS C
     Dosage: UNK
     Route: 042
     Dates: start: 20130215, end: 201304
  2. COPEGUS [Suspect]
     Indication: CHRONIC HEPATITIS C
     Dosage: 1000 MG/KG
     Route: 065
     Dates: start: 20130215, end: 201304

REACTIONS (3)
  - Neutropenia [Unknown]
  - Cellulitis [Recovering/Resolving]
  - Thrombocytopenia [Unknown]
